FAERS Safety Report 5230699-1 (Version None)
Quarter: 2007Q1

REPORT INFORMATION
  Report Type: 
  Country: None (occurrence: None)
  Receive Date: 20070206
  Receipt Date: 20070131
  Transmission Date: 20070707
  Serious: Yes (Other)
  Sender: FDA-Public Use
  Company Number: GB-GLAXOSMITHKLINE-B0359622A

PATIENT
  Sex: Female

DRUGS (4)
  1. SEROXAT [Suspect]
     Route: 065
     Dates: start: 19960217, end: 19970714
  2. ECSTASY [Suspect]
     Route: 065
  3. VALIUM [Suspect]
     Route: 065
  4. PARACETAMOL [Suspect]
     Route: 065

REACTIONS (10)
  - ABNORMAL DREAMS [None]
  - AGGRESSION [None]
  - DIZZINESS [None]
  - DRUG WITHDRAWAL SYNDROME [None]
  - HYPERHIDROSIS [None]
  - INTENTIONAL SELF-INJURY [None]
  - LETHARGY [None]
  - OVERDOSE [None]
  - SLEEP DISORDER [None]
  - SUICIDE ATTEMPT [None]
